FAERS Safety Report 15212983 (Version 2)
Quarter: 2018Q3

REPORT INFORMATION
  Report Type: Report from Study
  Country: None (occurrence: AR)
  Receive Date: 20180730
  Receipt Date: 20180927
  Transmission Date: 20181010
  Serious: Yes (Other)
  Sender: FDA-Public Use
  Company Number: AR-ABBVIE-18K-007-2434463-00

PATIENT
  Age: 36 Year
  Sex: Male

DRUGS (2)
  1. HUMIRA [Suspect]
     Active Substance: ADALIMUMAB
     Dosage: 2 PENS OF 40 MG EVERY 7 DAYS
     Route: 058
     Dates: start: 201805
  2. HUMIRA [Suspect]
     Active Substance: ADALIMUMAB
     Indication: HIDRADENITIS
     Route: 058
     Dates: start: 20170503

REACTIONS (11)
  - Fistula [Unknown]
  - Post procedural fistula [Unknown]
  - Hidradenitis [Recovered/Resolved]
  - Swelling [Unknown]
  - Fistula [Unknown]
  - Hidradenitis [Unknown]
  - Hypothermia [Unknown]
  - Sneezing [Unknown]
  - Hypertension [Not Recovered/Not Resolved]
  - Drug ineffective [Recovering/Resolving]
  - Pyrexia [Unknown]

NARRATIVE: CASE EVENT DATE: 2017
